FAERS Safety Report 5960133-5 (Version None)
Quarter: 2008Q4

REPORT INFORMATION
  Report Type: 
  Country: None (occurrence: None)
  Receive Date: 20081118
  Receipt Date: 20081118
  Transmission Date: 20090506
  Serious: Yes (Hospitalization, Other)
  Sender: FDA-Public Use
  Company Number: None

PATIENT
  Age: 28 Year
  Sex: Female
  Weight: 106.5953 kg

DRUGS (4)
  1. ROXICODONE [Suspect]
     Indication: BACK PAIN
  2. ROXICODONE [Suspect]
     Indication: NECK PAIN
  3. ROXICODONE [Suspect]
     Indication: PAIN IN EXTREMITY
  4. ROXICODONE [Suspect]
     Indication: THORACIC OUTLET SYNDROME

REACTIONS (3)
  - DRUG EFFECT DECREASED [None]
  - DRUG INEFFECTIVE [None]
  - PRODUCT QUALITY ISSUE [None]
